FAERS Safety Report 7880133-8 (Version None)
Quarter: 2011Q4

REPORT INFORMATION
  Report Type: 
  Country: None (occurrence: None)
  Receive Date: 20111101
  Receipt Date: 20111021
  Transmission Date: 20120403
  Serious: Yes (Hospitalization, Other)
  Sender: FDA-Public Use
  Company Number: US-BAYER-2011-073688

PATIENT
  Age: 42 Year
  Sex: Female

DRUGS (6)
  1. PAXIL [Concomitant]
     Indication: ANXIETY
     Dosage: UNK
     Dates: start: 20010101, end: 20040101
  2. GUAIFENESIN ER [Concomitant]
     Dosage: 600 MG, UNK
     Dates: start: 20030727
  3. YASMIN [Suspect]
     Dosage: UNK
     Dates: start: 20020401, end: 20030801
  4. MECLIZINE [Concomitant]
     Indication: DIZZINESS
     Dosage: UNK
     Dates: start: 20011001, end: 20071001
  5. CEPHALEXIN [Concomitant]
     Dosage: 500 MG, UNK
     Dates: start: 20030727
  6. FLONASE [Concomitant]
     Dosage: 0.05 %, UNK
     Dates: start: 20030725

REACTIONS (4)
  - EMOTIONAL DISTRESS [None]
  - INJURY [None]
  - PULMONARY EMBOLISM [None]
  - DEEP VEIN THROMBOSIS [None]
